FAERS Safety Report 4549590-9 (Version None)
Quarter: 2005Q1

REPORT INFORMATION
  Report Type: 
  Country: None (occurrence: None)
  Receive Date: 20050111
  Receipt Date: 20041230
  Transmission Date: 20050727
  Serious: Yes (Congenital Anomaly)
  Sender: FDA-Public Use
  Company Number: DE-JNJFOC-20041201489

PATIENT

DRUGS (5)
  1. CAELYX [Suspect]
     Indication: MATERNAL DRUGS AFFECTING FOETUS
     Dosage: 508 MG CUMULATIVE DOSE
  2. CISPLATIN [Suspect]
     Indication: MATERNAL DRUGS AFFECTING FOETUS
     Dosage: 508 MG CUMULATIVE DOSE
     Route: 042
  3. METHOTREXATE [Suspect]
     Indication: MATERNAL DRUGS AFFECTING FOETUS
     Dosage: 146.4 GRAMS (CUMULATIVE DOSE)
     Route: 042
  4. IFOSFAMIDE [Suspect]
     Indication: MATERNAL DRUGS AFFECTING FOETUS
     Dosage: 24.8 GRAMS (CUMULATIVE DOSE)
     Route: 042
  5. MARCUMAR [Suspect]
     Indication: MATERNAL DRUGS AFFECTING FOETUS
     Route: 049

REACTIONS (4)
  - CONGENITAL OSTEODYSTROPHY [None]
  - DRUG EXPOSURE DURING PREGNANCY [None]
  - MACROCEPHALY [None]
  - SMALL FOR DATES BABY [None]
